FAERS Safety Report 4624575-2 (Version None)
Quarter: 2005Q2

REPORT INFORMATION
  Report Type: 
  Country: None (occurrence: None)
  Receive Date: 20050325
  Receipt Date: 20050120
  Transmission Date: 20051028
  Serious: No
  Sender: FDA-Public Use
  Company Number: USA050188858

PATIENT
  Age: 78 Year
  Sex: Female

DRUGS (7)
  1. FORTEO [Suspect]
     Indication: OSTEOPOROSIS
     Dosage: 20 UG DAY
     Dates: start: 20041101, end: 20041226
  2. MULTI-VITAMIN [Concomitant]
  3. VIT C TAB [Concomitant]
  4. CALCIUM WITH VITAMIN D [Concomitant]
  5. HEMATINIC PLUS VITAMINS + MINERALS [Concomitant]
  6. GERITOL [Concomitant]
  7. PRILOSEC (OMEPRAZOLE RATIOPHARM) [Concomitant]

REACTIONS (4)
  - BONE PAIN [None]
  - DIZZINESS [None]
  - NASOPHARYNGITIS [None]
  - PALPITATIONS [None]
